FAERS Safety Report 10983013 (Version 1)
Quarter: 2015Q1

REPORT INFORMATION
  Report Type: Spontaneous
  Country: FR (occurrence: None)
  Receive Date: 20150302
  Receipt Date: 20150302
  Transmission Date: 20150721
  Serious: Yes (Hospitalization)
  Sender: FDA-Public Use
  Company Number: 2014SYM00170

PATIENT
  Age: 87 Year
  Sex: Female

DRUGS (8)
  1. DOMPERIDONE (DOMPERIDONE) [Concomitant]
     Active Substance: DOMPERIDONE
  2. ACEON [Suspect]
     Active Substance: PERINDOPRIL ERBUMINE
     Indication: PRODUCT USED FOR UNKNOWN INDICATION
     Route: 048
     Dates: end: 20130414
  3. LORAMYC (MICONAZOLE) [Concomitant]
  4. TAHOR [Concomitant]
     Active Substance: ATORVASTATIN CALCIUM
  5. DOLIPRANE [Concomitant]
     Active Substance: ACETAMINOPHEN
  6. LEVEMIR [Concomitant]
     Active Substance: INSULIN DETEMIR
  7. LOXEN (NICARDIPINE HYDROCHLORIDE) [Concomitant]
  8. GAVISCON (SODIUM ALGINATE, SODIUM BICARBONATE) [Concomitant]

REACTIONS (1)
  - Angioedema [None]

NARRATIVE: CASE EVENT DATE: 20130412
